FAERS Safety Report 6389809-5 (Version None)
Quarter: 2009Q4

REPORT INFORMATION
  Report Type: 
  Country: None (occurrence: None)
  Receive Date: 20091006
  Receipt Date: 20090929
  Transmission Date: 20100525
  Serious: Yes (Hospitalization)
  Sender: FDA-Public Use
  Company Number: US-GENENTECH-291292

PATIENT
  Sex: Male

DRUGS (1)
  1. AVASTIN [Suspect]
     Indication: CORNEAL NEOVASCULARISATION
     Dosage: 1 GTT, TID
     Route: 061

REACTIONS (1)
  - PNEUMONIA [None]
